FAERS Safety Report 10069391 (Version 2)
Quarter: 2014Q2

REPORT INFORMATION
  Report Type: Spontaneous
  Country: JP (occurrence: JP)
  Receive Date: 20140410
  Receipt Date: 20140410
  Transmission Date: 20141212
  Serious: Yes (Life-Threatening)
  Sender: FDA-Public Use
  Company Number: JP-AMGEN-JPNSP2014019786

PATIENT
  Age: 68 Year
  Sex: Female
  Weight: 63 kg

DRUGS (10)
  1. PRALIA [Suspect]
     Indication: OSTEOPOROSIS
     Dosage: 60 MG, Q6MO
     Route: 058
     Dates: start: 20140224
  2. ALFAROL [Concomitant]
     Dosage: UNK
     Route: 065
  3. PREDONINE                          /00016201/ [Concomitant]
     Dosage: UNK
     Route: 065
  4. LANDSEN [Concomitant]
     Dosage: UNK
     Route: 065
  5. NEXIUM                             /01479302/ [Concomitant]
     Dosage: UNK
     Route: 065
  6. CRESTOR [Concomitant]
     Dosage: UNK
     Route: 065
  7. FEBUXOSTAT [Concomitant]
     Dosage: UNK
     Route: 065
  8. LASIX                              /00032601/ [Concomitant]
     Dosage: UNK
     Route: 065
  9. BAYASPIRIN [Concomitant]
     Dosage: UNK
     Route: 065
  10. KREMEZIN [Concomitant]
     Dosage: UNK
     Route: 065

REACTIONS (1)
  - Hypocalcaemia [Recovered/Resolved]
